FAERS Safety Report 17720066 (Version 12)
Quarter: 2025Q3

REPORT INFORMATION
  Report Type: Spontaneous
  Country: EU (occurrence: EU)
  Receive Date: 20200428
  Receipt Date: 20250911
  Transmission Date: 20251021
  Serious: Yes (Death, Life-Threatening, Hospitalization, Other)
  Sender: MYLAN
  Company Number: EU-VELOXIS PHARMACEUTICALS-2020VELPL-000306

PATIENT
  Age: 61 Year
  Sex: Female

DRUGS (120)
  1. MYCOPHENOLATE MOFETIL [Suspect]
     Active Substance: MYCOPHENOLATE MOFETIL
     Indication: Graft versus host disease
     Route: 065
  2. MYCOPHENOLATE MOFETIL [Suspect]
     Active Substance: MYCOPHENOLATE MOFETIL
     Indication: Immunosuppressant drug therapy
  3. MYCOPHENOLATE MOFETIL [Suspect]
     Active Substance: MYCOPHENOLATE MOFETIL
  4. MYCOPHENOLATE MOFETIL [Suspect]
     Active Substance: MYCOPHENOLATE MOFETIL
     Route: 065
  5. MYCOPHENOLATE MOFETIL [Suspect]
     Active Substance: MYCOPHENOLATE MOFETIL
     Route: 065
  6. MYCOPHENOLATE MOFETIL [Suspect]
     Active Substance: MYCOPHENOLATE MOFETIL
  7. MYCOPHENOLATE MOFETIL [Suspect]
     Active Substance: MYCOPHENOLATE MOFETIL
  8. MYCOPHENOLATE MOFETIL [Suspect]
     Active Substance: MYCOPHENOLATE MOFETIL
     Route: 065
  9. BORTEZOMIB [Suspect]
     Active Substance: BORTEZOMIB
     Indication: Plasma cell myeloma
  10. BORTEZOMIB [Suspect]
     Active Substance: BORTEZOMIB
     Route: 065
  11. BORTEZOMIB [Suspect]
     Active Substance: BORTEZOMIB
     Route: 065
  12. BORTEZOMIB [Suspect]
     Active Substance: BORTEZOMIB
  13. TACROLIMUS [Suspect]
     Active Substance: TACROLIMUS
     Indication: Graft versus host disease
     Route: 065
  14. TACROLIMUS [Suspect]
     Active Substance: TACROLIMUS
     Indication: Immunosuppressant drug therapy
  15. TACROLIMUS [Suspect]
     Active Substance: TACROLIMUS
  16. TACROLIMUS [Suspect]
     Active Substance: TACROLIMUS
     Route: 065
  17. TACROLIMUS [Suspect]
     Active Substance: TACROLIMUS
     Route: 065
  18. TACROLIMUS [Suspect]
     Active Substance: TACROLIMUS
  19. TACROLIMUS [Suspect]
     Active Substance: TACROLIMUS
  20. TACROLIMUS [Suspect]
     Active Substance: TACROLIMUS
     Route: 065
  21. TACROLIMUS [Suspect]
     Active Substance: TACROLIMUS
     Indication: Graft versus host disease
  22. TACROLIMUS [Suspect]
     Active Substance: TACROLIMUS
     Route: 065
  23. TACROLIMUS [Suspect]
     Active Substance: TACROLIMUS
     Route: 065
  24. TACROLIMUS [Suspect]
     Active Substance: TACROLIMUS
  25. TACROLIMUS [Suspect]
     Active Substance: TACROLIMUS
     Indication: Immunosuppressant drug therapy
  26. TACROLIMUS [Suspect]
     Active Substance: TACROLIMUS
     Indication: Graft versus host disease
     Route: 065
  27. TACROLIMUS [Suspect]
     Active Substance: TACROLIMUS
     Route: 065
  28. TACROLIMUS [Suspect]
     Active Substance: TACROLIMUS
  29. ENVARSUS XR [Suspect]
     Active Substance: TACROLIMUS
     Indication: Graft versus host disease
  30. ENVARSUS XR [Suspect]
     Active Substance: TACROLIMUS
     Route: 065
  31. ENVARSUS XR [Suspect]
     Active Substance: TACROLIMUS
     Route: 065
  32. ENVARSUS XR [Suspect]
     Active Substance: TACROLIMUS
  33. GANCICLOVIR [Suspect]
     Active Substance: GANCICLOVIR
     Indication: Cytomegalovirus infection
  34. GANCICLOVIR [Suspect]
     Active Substance: GANCICLOVIR
     Indication: Cytomegalovirus infection reactivation
     Route: 065
  35. GANCICLOVIR [Suspect]
     Active Substance: GANCICLOVIR
     Route: 065
  36. GANCICLOVIR [Suspect]
     Active Substance: GANCICLOVIR
  37. THALIDOMIDE [Suspect]
     Active Substance: THALIDOMIDE
     Indication: Plasma cell myeloma
     Route: 065
  38. THALIDOMIDE [Suspect]
     Active Substance: THALIDOMIDE
  39. THALIDOMIDE [Suspect]
     Active Substance: THALIDOMIDE
  40. THALIDOMIDE [Suspect]
     Active Substance: THALIDOMIDE
     Route: 065
  41. THALIDOMIDE [Suspect]
     Active Substance: THALIDOMIDE
     Route: 065
  42. THALIDOMIDE [Suspect]
     Active Substance: THALIDOMIDE
  43. THALIDOMIDE [Suspect]
     Active Substance: THALIDOMIDE
  44. THALIDOMIDE [Suspect]
     Active Substance: THALIDOMIDE
     Route: 065
  45. CYCLOPHOSPHAMIDE [Suspect]
     Active Substance: CYCLOPHOSPHAMIDE
     Indication: Plasma cell myeloma
  46. CYCLOPHOSPHAMIDE [Suspect]
     Active Substance: CYCLOPHOSPHAMIDE
     Route: 065
  47. CYCLOPHOSPHAMIDE [Suspect]
     Active Substance: CYCLOPHOSPHAMIDE
     Route: 065
  48. CYCLOPHOSPHAMIDE [Suspect]
     Active Substance: CYCLOPHOSPHAMIDE
  49. CYCLOPHOSPHAMIDE [Suspect]
     Active Substance: CYCLOPHOSPHAMIDE
  50. CYCLOPHOSPHAMIDE [Suspect]
     Active Substance: CYCLOPHOSPHAMIDE
     Route: 065
  51. CYCLOPHOSPHAMIDE [Suspect]
     Active Substance: CYCLOPHOSPHAMIDE
  52. CYCLOPHOSPHAMIDE [Suspect]
     Active Substance: CYCLOPHOSPHAMIDE
     Route: 065
  53. CYCLOPHOSPHAMIDE [Suspect]
     Active Substance: CYCLOPHOSPHAMIDE
     Route: 065
  54. CYCLOPHOSPHAMIDE [Suspect]
     Active Substance: CYCLOPHOSPHAMIDE
     Route: 065
  55. CYCLOPHOSPHAMIDE [Suspect]
     Active Substance: CYCLOPHOSPHAMIDE
  56. CYCLOPHOSPHAMIDE [Suspect]
     Active Substance: CYCLOPHOSPHAMIDE
  57. MELPHALAN [Suspect]
     Active Substance: MELPHALAN
     Indication: Plasma cell myeloma
  58. MELPHALAN [Suspect]
     Active Substance: MELPHALAN
     Indication: Bone marrow conditioning regimen
  59. MELPHALAN [Suspect]
     Active Substance: MELPHALAN
     Route: 065
  60. MELPHALAN [Suspect]
     Active Substance: MELPHALAN
     Route: 065
  61. MELPHALAN [Suspect]
     Active Substance: MELPHALAN
  62. MELPHALAN [Suspect]
     Active Substance: MELPHALAN
  63. MELPHALAN [Suspect]
     Active Substance: MELPHALAN
     Route: 065
  64. MELPHALAN [Suspect]
     Active Substance: MELPHALAN
     Route: 065
  65. MELPHALAN [Suspect]
     Active Substance: MELPHALAN
     Route: 065
  66. MELPHALAN [Suspect]
     Active Substance: MELPHALAN
  67. MELPHALAN [Suspect]
     Active Substance: MELPHALAN
     Route: 065
  68. MELPHALAN [Suspect]
     Active Substance: MELPHALAN
  69. MELPHALAN [Suspect]
     Active Substance: MELPHALAN
     Route: 065
  70. MELPHALAN [Suspect]
     Active Substance: MELPHALAN
     Route: 065
  71. MELPHALAN [Suspect]
     Active Substance: MELPHALAN
  72. MELPHALAN [Suspect]
     Active Substance: MELPHALAN
  73. MELPHALAN [Suspect]
     Active Substance: MELPHALAN
     Route: 065
  74. MELPHALAN [Suspect]
     Active Substance: MELPHALAN
  75. MELPHALAN [Suspect]
     Active Substance: MELPHALAN
  76. MELPHALAN [Suspect]
     Active Substance: MELPHALAN
     Route: 065
  77. MELPHALAN [Suspect]
     Active Substance: MELPHALAN
     Route: 065
  78. MELPHALAN [Suspect]
     Active Substance: MELPHALAN
  79. MELPHALAN [Suspect]
     Active Substance: MELPHALAN
     Route: 065
  80. MELPHALAN [Suspect]
     Active Substance: MELPHALAN
  81. MELPHALAN [Suspect]
     Active Substance: MELPHALAN
     Route: 065
  82. MELPHALAN [Suspect]
     Active Substance: MELPHALAN
     Route: 065
  83. MELPHALAN [Suspect]
     Active Substance: MELPHALAN
  84. MELPHALAN [Suspect]
     Active Substance: MELPHALAN
  85. VALGANCICLOVIR [Suspect]
     Active Substance: VALGANCICLOVIR
     Indication: Cytomegalovirus infection
     Dosage: 1800 MILLIGRAM, QD (900 MG TWICE DAILY)
  86. VALGANCICLOVIR [Suspect]
     Active Substance: VALGANCICLOVIR
     Indication: Cytomegalovirus infection reactivation
     Dosage: 1800 MILLIGRAM, QD (900 MG TWICE DAILY)
  87. VALGANCICLOVIR [Suspect]
     Active Substance: VALGANCICLOVIR
     Dosage: 1800 MILLIGRAM, QD (900 MG TWICE DAILY)
     Route: 065
  88. VALGANCICLOVIR [Suspect]
     Active Substance: VALGANCICLOVIR
     Dosage: 1800 MILLIGRAM, QD (900 MG TWICE DAILY)
     Route: 065
  89. VALGANCICLOVIR [Suspect]
     Active Substance: VALGANCICLOVIR
     Dosage: 900 MILLIGRAM. 0.5 PER DAY
  90. VALGANCICLOVIR [Suspect]
     Active Substance: VALGANCICLOVIR
     Dosage: 900 MILLIGRAM. 0.5 PER DAY
  91. VALGANCICLOVIR [Suspect]
     Active Substance: VALGANCICLOVIR
     Dosage: 900 MILLIGRAM. 0.5 PER DAY
     Route: 065
  92. VALGANCICLOVIR [Suspect]
     Active Substance: VALGANCICLOVIR
     Dosage: 900 MILLIGRAM. 0.5 PER DAY
     Route: 065
  93. METHYLPREDNISOLONE [Suspect]
     Active Substance: METHYLPREDNISOLONE
     Indication: Graft versus host disease
     Route: 065
  94. METHYLPREDNISOLONE [Suspect]
     Active Substance: METHYLPREDNISOLONE
     Indication: Immunosuppressant drug therapy
  95. METHYLPREDNISOLONE [Suspect]
     Active Substance: METHYLPREDNISOLONE
  96. METHYLPREDNISOLONE [Suspect]
     Active Substance: METHYLPREDNISOLONE
     Route: 065
  97. METHYLPREDNISOLONE [Suspect]
     Active Substance: METHYLPREDNISOLONE
     Route: 065
  98. METHYLPREDNISOLONE [Suspect]
     Active Substance: METHYLPREDNISOLONE
  99. METHYLPREDNISOLONE [Suspect]
     Active Substance: METHYLPREDNISOLONE
  100. METHYLPREDNISOLONE [Suspect]
     Active Substance: METHYLPREDNISOLONE
     Route: 065
  101. DEXAMETHASONE [Suspect]
     Active Substance: DEXAMETHASONE
     Indication: Plasma cell myeloma
  102. DEXAMETHASONE [Suspect]
     Active Substance: DEXAMETHASONE
  103. DEXAMETHASONE [Suspect]
     Active Substance: DEXAMETHASONE
     Route: 065
  104. DEXAMETHASONE [Suspect]
     Active Substance: DEXAMETHASONE
     Route: 065
  105. DEXAMETHASONE [Suspect]
     Active Substance: DEXAMETHASONE
  106. DEXAMETHASONE [Suspect]
     Active Substance: DEXAMETHASONE
  107. DEXAMETHASONE [Suspect]
     Active Substance: DEXAMETHASONE
     Route: 065
  108. DEXAMETHASONE [Suspect]
     Active Substance: DEXAMETHASONE
     Route: 065
  109. DEXAMETHASONE [Concomitant]
     Active Substance: DEXAMETHASONE
     Indication: Plasma cell myeloma
  110. DEXAMETHASONE [Concomitant]
     Active Substance: DEXAMETHASONE
  111. DEXAMETHASONE [Concomitant]
     Active Substance: DEXAMETHASONE
     Route: 065
  112. DEXAMETHASONE [Concomitant]
     Active Substance: DEXAMETHASONE
     Route: 065
  113. DEXAMETHASONE [Concomitant]
     Active Substance: DEXAMETHASONE
  114. DEXAMETHASONE [Concomitant]
     Active Substance: DEXAMETHASONE
  115. DEXAMETHASONE [Concomitant]
     Active Substance: DEXAMETHASONE
     Route: 065
  116. DEXAMETHASONE [Concomitant]
     Active Substance: DEXAMETHASONE
     Route: 065
  117. CYCLOPHOSPHAMIDE [Concomitant]
     Active Substance: CYCLOPHOSPHAMIDE
     Indication: Plasma cell myeloma
  118. CYCLOPHOSPHAMIDE [Concomitant]
     Active Substance: CYCLOPHOSPHAMIDE
     Route: 065
  119. CYCLOPHOSPHAMIDE [Concomitant]
     Active Substance: CYCLOPHOSPHAMIDE
     Route: 065
  120. CYCLOPHOSPHAMIDE [Concomitant]
     Active Substance: CYCLOPHOSPHAMIDE

REACTIONS (17)
  - Graft versus host disease [Fatal]
  - Infection [Fatal]
  - Pancytopenia [Fatal]
  - Cytomegalovirus infection reactivation [Fatal]
  - Dry skin [Fatal]
  - Skin exfoliation [Fatal]
  - Gastrointestinal disorder [Fatal]
  - General physical condition abnormal [Fatal]
  - Diarrhoea [Fatal]
  - Rash [Fatal]
  - Asthenia [Fatal]
  - Weight decreased [Fatal]
  - Pneumonia [Fatal]
  - Drug ineffective [Fatal]
  - Decreased appetite [Fatal]
  - Off label use [Fatal]
  - Therapeutic product effect incomplete [Not Recovered/Not Resolved]
